FAERS Safety Report 19066087 (Version 1)
Quarter: 2021Q1

REPORT INFORMATION
  Report Type: Spontaneous
  Country: DE (occurrence: DE)
  Receive Date: 20210327
  Receipt Date: 20210327
  Transmission Date: 20210420
  Serious: Yes (Other)
  Sender: FDA-Public Use
  Company Number: DE-ORGANON-O2103DEU002471

PATIENT
  Sex: Female

DRUGS (9)
  1. INEGY 10 MG/40 MG TABLETTEN [Suspect]
     Active Substance: EZETIMIBE\SIMVASTATIN
     Dosage: 0?0?1
  2. EFEROX [Suspect]
     Active Substance: LEVOTHYROXINE SODIUM
     Dosage: 1?0?0
  3. KNOBLAUCH MISTEL WEISSDORN [Suspect]
     Active Substance: HERBALS
     Dosage: UNK
  4. METOPROLOL. [Suspect]
     Active Substance: METOPROLOL
     Dosage: 1/2?0?1/2
  5. ASPIRIN. [Suspect]
     Active Substance: ASPIRIN
     Dosage: 0?1?0
  6. GINKOBIL [Suspect]
     Active Substance: GINKGO
     Dosage: 1?0?1
  7. VITAMIN B KOMPLEX [BIOTIN;CALCIUM PANTOTHENATE;FOLIC ACID;NICOTINAMIDE [Suspect]
     Active Substance: VITAMINS
     Dosage: UNK
  8. RAMIPRIL. [Suspect]
     Active Substance: RAMIPRIL
     Dosage: 0?0?1
  9. COLECALCIFEROL [Suspect]
     Active Substance: CHOLECALCIFEROL
     Dosage: 14?T?GIG 1

REACTIONS (1)
  - Polyneuropathy [Unknown]
